FAERS Safety Report 17212337 (Version 1)
Quarter: 2019Q4

REPORT INFORMATION
  Report Type: Spontaneous
  Country: SE (occurrence: SE)
  Receive Date: 20191230
  Receipt Date: 20191230
  Transmission Date: 20200122
  Serious: Yes (Hospitalization)
  Sender: FDA-Public Use
  Company Number: SE-TEVA-2019-SE-1158618

PATIENT
  Age: 53 Year
  Sex: Male

DRUGS (4)
  1. CITODON [Suspect]
     Active Substance: ACETAMINOPHEN\CODEINE PHOSPHATE
     Dates: start: 20180313, end: 20180313
  2. PANODIL [Suspect]
     Active Substance: ACETAMINOPHEN
     Dates: start: 20180313, end: 20180313
  3. PROPAVAN [Suspect]
     Active Substance: PROPIOMAZINE
     Dosage: MANY
     Route: 048
     Dates: start: 20180313, end: 20180313
  4. MIRTAZAPINE. [Suspect]
     Active Substance: MIRTAZAPINE
     Dates: start: 20180313, end: 20180313

REACTIONS (3)
  - Intentional overdose [Unknown]
  - Loss of consciousness [Unknown]
  - Intentional self-injury [Unknown]

NARRATIVE: CASE EVENT DATE: 20180313
